FAERS Safety Report 21198732 (Version 1)
Quarter: 2022Q3

REPORT INFORMATION
  Report Type: Report from Study
  Country: KR (occurrence: KR)
  Receive Date: 20220811
  Receipt Date: 20220811
  Transmission Date: 20221026
  Serious: No
  Sender: FDA-Public Use
  Company Number: KR-BAXTER-2022BAX017047

PATIENT
  Sex: Female

DRUGS (3)
  1. CALCIUM CHLORIDE\DEXTROSE\MAGNESIUM CHLORIDE\SODIUM CHLORIDE [Suspect]
     Active Substance: CALCIUM CHLORIDE\DEXTROSE\MAGNESIUM CHLORIDE\SODIUM CHLORIDE
     Indication: Peritoneal dialysis
     Dosage: PVC, 2000 CC, 3 CYCLE
     Route: 033
  2. CALCIUM CHLORIDE\DEXTROSE\MAGNESIUM CHLORIDE\SODIUM CHLORIDE [Suspect]
     Active Substance: CALCIUM CHLORIDE\DEXTROSE\MAGNESIUM CHLORIDE\SODIUM CHLORIDE
     Indication: Peritoneal dialysis
     Dosage: PVC, 2000 CC, 1 CYCLE PER DAY
     Route: 033
  3. UNSPECIFIED INGREDIENT [Suspect]
     Active Substance: UNSPECIFIED INGREDIENT
     Indication: Product used for unknown indication
     Route: 065

REACTIONS (2)
  - Weight increased [Unknown]
  - Oedema [Unknown]
